FAERS Safety Report 5066817-8 (Version None)
Quarter: 2006Q3

REPORT INFORMATION
  Report Type: 
  Country: None (occurrence: None)
  Receive Date: 20060801
  Receipt Date: 20060724
  Transmission Date: 20061208
  Serious: Yes (Hospitalization)
  Sender: FDA-Public Use
  Company Number: PHRM2006FR02189

PATIENT
  Age: 75 Year
  Sex: Male

DRUGS (5)
  1. TRILEPTAL [Suspect]
     Indication: PARTIAL SEIZURES
     Dosage: 600 MG/DAY
     Route: 048
     Dates: start: 20060512, end: 20060612
  2. TRILEPTAL [Suspect]
     Dosage: 1200 MG/DAY
     Dates: start: 20060613, end: 20060619
  3. ASPIRIN [Concomitant]
  4. ALLOPURINOL [Concomitant]
  5. TEMESTA [Concomitant]

REACTIONS (6)
  - CARDIAC PACEMAKER INSERTION [None]
  - CONDUCTION DISORDER [None]
  - CONFUSIONAL STATE [None]
  - ELECTROCARDIOGRAM ABNORMAL [None]
  - MALAISE [None]
  - SYNCOPE [None]
